FAERS Safety Report 8423428-1 (Version None)
Quarter: 2012Q2

REPORT INFORMATION
  Report Type: 
  Country: None (occurrence: None)
  Receive Date: 20120608
  Receipt Date: 20120604
  Transmission Date: 20120825
  Serious: Yes (Death, Life-Threatening, Hospitalization, Other)
  Sender: FDA-Public Use
  Company Number: JO-ASTRAZENECA-2011SE22768

PATIENT
  Age: 40 Year
  Sex: Female

DRUGS (6)
  1. VENLAFAXINE [Suspect]
     Indication: MAJOR DEPRESSION
     Route: 048
  2. FERROUS SULFATE TAB [Concomitant]
     Route: 048
  3. MIRTAZAPINE [Suspect]
     Indication: MAJOR DEPRESSION
     Route: 048
  4. QUETIAPINE [Suspect]
     Indication: MAJOR DEPRESSION
     Route: 048
  5. LAMOTRIGINE [Suspect]
     Indication: MAJOR DEPRESSION
     Route: 048
  6. ANTIBIOTICS [Concomitant]
     Indication: CELLULITIS

REACTIONS (8)
  - CONVULSION [None]
  - ACUTE LEUKAEMIA [None]
  - RENAL FAILURE ACUTE [None]
  - SEPTIC SHOCK [None]
  - FEBRILE NEUTROPENIA [None]
  - AGRANULOCYTOSIS [None]
  - MULTI-ORGAN FAILURE [None]
  - CARDIAC ARREST [None]
